FAERS Safety Report 4868378-2 (Version None)
Quarter: 2005Q4

REPORT INFORMATION
  Report Type: 
  Country: None (occurrence: None)
  Receive Date: 20051229
  Receipt Date: 20051228
  Transmission Date: 20060501
  Serious: Yes (Other)
  Sender: FDA-Public Use
  Company Number: US-GLAXOSMITHKLINE-A0587110A

PATIENT
  Sex: Male
  Weight: 2.9 kg

DRUGS (6)
  1. LAMICTAL [Suspect]
     Indication: BIPOLAR DISORDER
     Dates: start: 20050422
  2. DEPAKOTE [Concomitant]
     Dates: end: 20050509
  3. GEODON [Concomitant]
  4. BENADRYL [Concomitant]
  5. RISPERDAL [Concomitant]
  6. AMBIEN [Concomitant]

REACTIONS (4)
  - DRUG EXPOSURE DURING PREGNANCY [None]
  - DRUG EXPOSURE VIA BREAST MILK [None]
  - FOETAL DISTRESS SYNDROME [None]
  - RESPIRATORY ARREST [None]
